FAERS Safety Report 9825177 (Version 1)
Quarter: 2014Q1

REPORT INFORMATION
  Report Type: Report from Study
  Country: US (occurrence: US)
  Receive Date: 20140117
  Receipt Date: 20140117
  Transmission Date: 20141002
  Serious: Yes (Other)
  Sender: FDA-Public Use
  Company Number: US-ROCHE-1334040

PATIENT
  Age: 49 Year
  Sex: 0

DRUGS (4)
  1. RIBAVIRIN [Suspect]
     Indication: CHRONIC HEPATITIS C
     Dosage: EVERY DAY
     Route: 048
  2. PEGINTERFERON ALFA-2B [Suspect]
     Indication: CHRONIC HEPATITIS C
     Route: 058
  3. EFAVIRENZ [Concomitant]
  4. TRIZIVIR [Concomitant]

REACTIONS (2)
  - Retinal exudates [Recovered/Resolved]
  - Cataract [Not Recovered/Not Resolved]
